FAERS Safety Report 7833246-0 (Version None)
Quarter: 2011Q4

REPORT INFORMATION
  Report Type: 
  Country: None (occurrence: None)
  Receive Date: 20111024
  Receipt Date: 20111017
  Transmission Date: 20120403
  Serious: Yes (Other)
  Sender: FDA-Public Use
  Company Number: IT-JNJFOC-20111008526

PATIENT
  Age: 6 Decade
  Sex: Male

DRUGS (4)
  1. DARUNAVIR ETHANOLATE [Suspect]
     Indication: HIV INFECTION
     Route: 048
  2. EMTRICITABINE/TENOFOVIR DISOPROXIL FUMARATE [Interacting]
     Indication: HIV INFECTION
     Route: 065
  3. MESALAMINE [Suspect]
     Route: 065
  4. MESALAMINE [Suspect]
     Indication: COLITIS ULCERATIVE
     Route: 065

REACTIONS (4)
  - DRUG INTERACTION [None]
  - TOXICITY TO VARIOUS AGENTS [None]
  - IMMUNE RECONSTITUTION SYNDROME [None]
  - MYCOBACTERIUM AVIUM COMPLEX INFECTION [None]
